FAERS Safety Report 8990649 (Version 1)
Quarter: 2012Q4

REPORT INFORMATION
  Report Type: 
  Country: BR (occurrence: BR)
  Receive Date: 20121228
  Receipt Date: 20121228
  Transmission Date: 20130627
  Serious: Yes (Other)
  Sender: FDA-Public Use
  Company Number: BR-ROCHE-1173582

PATIENT
  Sex: Female
  Weight: 74 kg

DRUGS (4)
  1. OMALIZUMAB [Suspect]
     Indication: ASTHMA
     Route: 058
     Dates: start: 201107
  2. METFORMIN [Concomitant]
  3. ALENIA (BRAZIL) [Concomitant]
  4. ATROVENT [Concomitant]

REACTIONS (7)
  - Weight decreased [Unknown]
  - Umbilical hernia [Recovered/Resolved]
  - Calculus bladder [Recovered/Resolved]
  - Pain [Recovered/Resolved]
  - Retching [Recovered/Resolved]
  - Influenza [Recovered/Resolved]
  - Cough [Recovered/Resolved]
